FAERS Safety Report 10314298 (Version 1)
Quarter: 2014Q3

REPORT INFORMATION
  Report Type: Spontaneous
  Country: US (occurrence: US)
  Receive Date: 20140718
  Receipt Date: 20140718
  Transmission Date: 20150326
  Serious: Yes (Other)
  Sender: FDA-Public Use
  Company Number: US-GLAXOSMITHKLINE-A1081511A

PATIENT
  Age: 46 Year
  Sex: Female

DRUGS (26)
  1. HUMALOG [Concomitant]
     Active Substance: INSULIN LISPRO
  2. DIOVAN [Concomitant]
     Active Substance: VALSARTAN
  3. LOPRESSOR [Concomitant]
     Active Substance: METOPROLOL TARTRATE
  4. SPIRONOLACTONE. [Concomitant]
     Active Substance: SPIRONOLACTONE
  5. TYLENOL [Concomitant]
     Active Substance: ACETAMINOPHEN
  6. MUCINEX [Concomitant]
     Active Substance: GUAIFENESIN
  7. VITAMIN B12 [Concomitant]
     Active Substance: CYANOCOBALAMIN
  8. OMEGA 3 FISH OIL [Concomitant]
     Active Substance: FISH OIL\OMEGA-3 FATTY ACIDS
  9. PROBIOTIC [Concomitant]
     Active Substance: PROBIOTICS NOS
  10. PROZAC [Concomitant]
     Active Substance: FLUOXETINE HYDROCHLORIDE
  11. VITAMIN D [Concomitant]
     Active Substance: CHOLECALCIFEROL
  12. VENTOLIN [Concomitant]
     Active Substance: ALBUTEROL SULFATE
  13. METFORMIN [Concomitant]
     Active Substance: METFORMIN HYDROCHLORIDE
  14. CALCIUM [Concomitant]
     Active Substance: CALCIUM
  15. CIMETIDINE [Concomitant]
     Active Substance: CIMETIDINE
  16. ASPIRIN. [Concomitant]
     Active Substance: ASPIRIN
  17. LASIX [Concomitant]
     Active Substance: FUROSEMIDE
  18. VYTORIN [Concomitant]
     Active Substance: EZETIMIBE\SIMVASTATIN
  19. ETODOLAC. [Concomitant]
     Active Substance: ETODOLAC
  20. AVANDIA [Suspect]
     Active Substance: ROSIGLITAZONE MALEATE
     Indication: PRODUCT USED FOR UNKNOWN INDICATION
     Route: 065
  21. VICTOZA [Concomitant]
     Active Substance: LIRAGLUTIDE
  22. BLACK COHOSH [Concomitant]
     Active Substance: BLACK COHOSH
  23. CPAP [Concomitant]
     Active Substance: DEVICE
  24. FLEXERIL [Concomitant]
     Active Substance: CYCLOBENZAPRINE HYDROCHLORIDE
  25. ADVAIR HFA [Suspect]
     Active Substance: FLUTICASONE PROPIONATE\SALMETEROL XINAFOATE
     Indication: PRODUCT USED FOR UNKNOWN INDICATION
     Route: 065
     Dates: start: 200409
  26. LANTUS [Concomitant]
     Active Substance: INSULIN GLARGINE

REACTIONS (7)
  - Stent placement [Unknown]
  - Catheterisation cardiac [Unknown]
  - Adverse drug reaction [Unknown]
  - Mammoplasty [Unknown]
  - Pericardial effusion [Unknown]
  - Pleural effusion [Unknown]
  - Hepatic steatosis [Unknown]

NARRATIVE: CASE EVENT DATE: 20040909
